FAERS Safety Report 9613357 (Version 1)
Quarter: 2013Q4

REPORT INFORMATION
  Report Type: Spontaneous
  Country: US (occurrence: US)
  Receive Date: 20131010
  Receipt Date: 20131010
  Transmission Date: 20140711
  Serious: No
  Sender: FDA-Public Use
  Company Number: US-BAXTER-2013BAX037931

PATIENT
  Age: 62 Year
  Sex: Male
  Weight: 108.96 kg

DRUGS (2)
  1. GAMMAGARD LIQUID [Suspect]
     Indication: NEUROPATHY PERIPHERAL
     Route: 042
     Dates: start: 20130909
  2. GAMMAGARD LIQUID [Suspect]
     Indication: OFF LABEL USE
     Route: 042
     Dates: start: 20130916

REACTIONS (3)
  - Rash vesicular [Unknown]
  - Expired drug administered [Unknown]
  - Off label use [Unknown]
